FAERS Safety Report 7335963-8 (Version None)
Quarter: 2011Q1

REPORT INFORMATION
  Report Type: 
  Country: None (occurrence: None)
  Receive Date: 20110307
  Receipt Date: 20110303
  Transmission Date: 20110831
  Serious: Yes (Disabling, Congenital Anomaly, Other)
  Sender: FDA-Public Use
  Company Number: DE-ABBOTT-11P-062-0708966-00

PATIENT
  Age: 1 Day
  Sex: Male

DRUGS (1)
  1. VALPROATE SODIUM/VALPROIC ACID [Suspect]
     Indication: DRUG EXPOSURE DURING PREGNANCY
     Route: 064

REACTIONS (12)
  - CONGENITAL SMALL INTESTINAL ATRESIA [None]
  - ATRIAL SEPTAL DEFECT [None]
  - EPILEPSY [None]
  - CEREBRAL DYSGENESIS [None]
  - LIP DISORDER [None]
  - DRUG EXPOSURE DURING PREGNANCY [None]
  - DYSPLASIA [None]
  - CONGENITAL NOSE MALFORMATION [None]
  - DYSMORPHISM [None]
  - MENTAL RETARDATION [None]
  - MOTOR DEVELOPMENTAL DELAY [None]
  - PACHYGYRIA [None]
